FAERS Safety Report 24718804 (Version 1)
Quarter: 2024Q4

REPORT INFORMATION
  Report Type: Spontaneous
  Country: US (occurrence: None)
  Receive Date: 20241210
  Receipt Date: 20241210
  Transmission Date: 20250114
  Serious: No
  Sender: Public
  Company Number: None

PATIENT
  Age: 48 Year
  Sex: Male
  Weight: 63 kg

DRUGS (2)
  1. GAMUNEX-C [Suspect]
     Active Substance: HUMAN IMMUNOGLOBULIN G
     Indication: Chronic inflammatory demyelinating polyradiculoneuropathy
     Dosage: 31 G  GRAM(S)  EVERY 3 WEEKS INTRAVENOUS
     Route: 042
  2. GAMUNEX-C [Suspect]
     Active Substance: HUMAN IMMUNOGLOBULIN G
     Indication: Chronic inflammatory demyelinating polyradiculoneuropathy
     Dosage: 31 G GRAMS(S) EVERY 3 WEEKS INTRAVENOUS?
     Route: 042

REACTIONS (6)
  - Infusion related reaction [None]
  - Chills [None]
  - Pain [None]
  - Headache [None]
  - Pollakiuria [None]
  - Thirst [None]

NARRATIVE: CASE EVENT DATE: 20241209
